FAERS Safety Report 22146481 (Version 2)
Quarter: 2023Q2

REPORT INFORMATION
  Report Type: Spontaneous
  Country: US (occurrence: US)
  Receive Date: 20230328
  Receipt Date: 20230406
  Transmission Date: 20230721
  Serious: Yes (Other)
  Sender: FDA-Public Use
  Company Number: US-SUN PHARMACEUTICAL INDUSTRIES LTD-2023R1-382393

PATIENT
  Age: 42 Year
  Sex: Male
  Weight: 45.2 kg

DRUGS (1)
  1. TESTOSTERONE [Suspect]
     Active Substance: TESTOSTERONE
     Indication: Transgender hormonal therapy
     Dosage: 1 GRAM, WEEKLY
     Route: 030

REACTIONS (1)
  - Idiopathic intracranial hypertension [Recovering/Resolving]
